FAERS Safety Report 20229787 (Version 1)
Quarter: 2021Q4

REPORT INFORMATION
  Report Type: Spontaneous
  Country: US (occurrence: US)
  Receive Date: 20211226
  Receipt Date: 20211226
  Transmission Date: 20220304
  Serious: No
  Sender: FDA-Public Use
  Company Number: US-ORGANON-O2112USA001189

PATIENT
  Age: 18 Year
  Sex: Female

DRUGS (1)
  1. NEXPLANON [Suspect]
     Active Substance: ETONOGESTREL
     Dosage: 1 DOSAGE FORM ,(LEFT ARM)
     Route: 059
     Dates: start: 20181208, end: 20211208

REACTIONS (2)
  - Device breakage [Recovered/Resolved]
  - No adverse event [Unknown]
